FAERS Safety Report 7050186-8 (Version None)
Quarter: 2010Q4

REPORT INFORMATION
  Report Type: 
  Country: None (occurrence: None)
  Receive Date: 20101018
  Receipt Date: 20101008
  Transmission Date: 20110411
  Serious: Yes (Other)
  Sender: FDA-Public Use
  Company Number: US-ROCHE-732836

PATIENT
  Sex: Female

DRUGS (1)
  1. AVASTIN [Suspect]
     Indication: OVARIAN CANCER
     Dosage: ROUTE, DOSE, FORM AND FREQUENCY: NOT PROVIDED
     Route: 065
     Dates: start: 20100825

REACTIONS (2)
  - HIP FRACTURE [None]
  - URINE ANALYSIS ABNORMAL [None]
